FAERS Safety Report 20011579 (Version 1)
Quarter: 2021Q4

REPORT INFORMATION
  Report Type: Spontaneous
  Country: US (occurrence: US)
  Receive Date: 20211029
  Receipt Date: 20211029
  Transmission Date: 20220303
  Serious: No
  Sender: FDA-Public Use
  Company Number: None

PATIENT

DRUGS (2)
  1. PHENTERMINE [Suspect]
     Active Substance: PHENTERMINE
  2. XENICAL [Suspect]
     Active Substance: ORLISTAT

REACTIONS (1)
  - Drug ineffective [None]
